FAERS Safety Report 7647531-9 (Version None)
Quarter: 2011Q3

REPORT INFORMATION
  Report Type: 
  Country: None (occurrence: None)
  Receive Date: 20110801
  Receipt Date: 20110721
  Transmission Date: 20111222
  Serious: Yes (Hospitalization, Disabling)
  Sender: FDA-Public Use
  Company Number: JP-GLAXOSMITHKLINE-B0716504A

PATIENT
  Sex: Female
  Weight: 12.3 kg

DRUGS (4)
  1. ETOPOSIDE [Suspect]
     Indication: STEM CELL TRANSPLANT
     Dosage: 110MG PER DAY
     Dates: start: 20080421, end: 20080424
  2. VICCLOX [Concomitant]
     Dosage: 75MG PER DAY
     Dates: start: 20080421, end: 20080528
  3. ALKERAN [Suspect]
     Indication: STEM CELL TRANSPLANT
     Dosage: 50MG PER DAY
     Route: 042
     Dates: start: 20080423, end: 20080424
  4. PARAPLATIN [Suspect]
     Indication: STEM CELL TRANSPLANT
     Dosage: 210MG PER DAY
     Dates: start: 20080421, end: 20080424

REACTIONS (3)
  - MUCOUS MEMBRANE DISORDER [None]
  - FEBRILE NEUTROPENIA [None]
  - ANTITHROMBIN III DECREASED [None]
